FAERS Safety Report 10017499 (Version 10)
Quarter: 2015Q1

REPORT INFORMATION
  Report Type: Report from Study
  Country: US (occurrence: US)
  Receive Date: 20140318
  Receipt Date: 20150120
  Transmission Date: 20150720
  Serious: Yes (Death, Hospitalization, Other)
  Sender: FDA-Public Use
  Company Number: US-ALEXION-A201400799

PATIENT

DRUGS (4)
  1. SOLIRIS [Suspect]
     Active Substance: ECULIZUMAB
     Dosage: 900 MG, Q2W
     Route: 042
     Dates: start: 20140115, end: 20140301
  2. SOLIRIS [Suspect]
     Active Substance: ECULIZUMAB
     Dosage: 900 MG, Q2W
     Route: 042
     Dates: start: 20140115, end: 20140301
  3. SOLIRIS [Suspect]
     Active Substance: ECULIZUMAB
     Dosage: 900 MG, Q2W
     Route: 042
     Dates: end: 2014
  4. SOLIRIS [Suspect]
     Active Substance: ECULIZUMAB
     Indication: PAROXYSMAL NOCTURNAL HAEMOGLOBINURIA
     Dosage: 900 MG, Q2W
     Route: 042
     Dates: start: 20140115, end: 20140301

REACTIONS (13)
  - Skin cancer [Unknown]
  - Rectal haemorrhage [Not Recovered/Not Resolved]
  - Unevaluable event [Unknown]
  - Death [Fatal]
  - Drug dose omission [Unknown]
  - Drug ineffective [Unknown]
  - Ill-defined disorder [Not Recovered/Not Resolved]
  - Malaise [Unknown]
  - Transfusion [Recovered/Resolved]
  - Rectal haemorrhage [Not Recovered/Not Resolved]
  - Dyspnoea [Recovered/Resolved]
  - Ejection fraction abnormal [Unknown]
  - Haemoglobin abnormal [Unknown]

NARRATIVE: CASE EVENT DATE: 20140225
